FAERS Safety Report 19753470 (Version 1)
Quarter: 2021Q3

REPORT INFORMATION
  Report Type: Spontaneous
  Country: US (occurrence: US)
  Receive Date: 20210827
  Receipt Date: 20210827
  Transmission Date: 20211014
  Serious: No
  Sender: FDA-Public Use
  Company Number: US-ASTRAZENECA-2021A689816

PATIENT
  Sex: Female
  Weight: 99.3 kg

DRUGS (10)
  1. LOSARTAN. [Concomitant]
     Active Substance: LOSARTAN
  2. XARELTO [Concomitant]
     Active Substance: RIVAROXABAN
  3. IRON SUPPLEMENT [Concomitant]
     Active Substance: IRON
  4. L LYSINE [Concomitant]
  5. BIOTIN [Concomitant]
     Active Substance: BIOTIN
  6. CRANBERRY. [Concomitant]
     Active Substance: CRANBERRY
  7. CALQUENCE [Suspect]
     Active Substance: ACALABRUTINIB
     Indication: MANTLE CELL LYMPHOMA
     Route: 048
     Dates: start: 202108
  8. INSULIN [Concomitant]
     Active Substance: INSULIN NOS
  9. CALQUENCE [Suspect]
     Active Substance: ACALABRUTINIB
     Indication: MANTLE CELL LYMPHOMA
     Route: 048
  10. METOPROLOL. [Concomitant]
     Active Substance: METOPROLOL

REACTIONS (4)
  - Contusion [Unknown]
  - Platelet count decreased [Recovered/Resolved]
  - Chest discomfort [Not Recovered/Not Resolved]
  - Skin discolouration [Not Recovered/Not Resolved]
